FAERS Safety Report 8554770-1 (Version None)
Quarter: 2012Q3

REPORT INFORMATION
  Report Type: 
  Country: None (occurrence: None)
  Receive Date: 20120731
  Receipt Date: 20120724
  Transmission Date: 20120928
  Serious: Yes (Hospitalization)
  Sender: FDA-Public Use
  Company Number: US-JNJFOC-20120701206

PATIENT
  Sex: Male
  Weight: 88.45 kg

DRUGS (17)
  1. CARBAMAZEPINE [Concomitant]
     Route: 048
  2. GABAPENTIN [Concomitant]
  3. XARELTO [Suspect]
     Indication: CEREBROVASCULAR ACCIDENT PROPHYLAXIS
     Route: 048
     Dates: start: 20120201, end: 20120629
  4. ALLOPURINOL [Concomitant]
     Route: 048
  5. PROPRANOLOL HYDROCHLORIDE [Concomitant]
  6. OXCARBAZEPINE [Concomitant]
  7. DIGOXIN [Concomitant]
     Route: 048
  8. DILTIAZEM HCL [Concomitant]
  9. CYMBALTA [Concomitant]
  10. CYMBALTA [Concomitant]
  11. XARELTO [Suspect]
     Indication: ATRIAL FIBRILLATION
     Route: 048
     Dates: start: 20120201, end: 20120629
  12. CITALOPRAM HYDROBROMIDE [Concomitant]
     Route: 048
  13. WARFARIN SODIUM [Concomitant]
     Route: 048
  14. MECLIZINE HCL [Concomitant]
     Route: 048
  15. SIMVASTATIN [Concomitant]
  16. TAMSULOSIN HCL [Concomitant]
  17. HYDROCHLOROTHIAZIDE [Concomitant]

REACTIONS (2)
  - GASTROINTESTINAL HAEMORRHAGE [None]
  - DRUG PRESCRIBING ERROR [None]
